FAERS Safety Report 11367323 (Version 1)
Quarter: 2015Q3

REPORT INFORMATION
  Report Type: Spontaneous
  Country: US (occurrence: US)
  Receive Date: 20150811
  Receipt Date: 20150811
  Transmission Date: 20151125
  Serious: No
  Sender: FDA-Public Use
  Company Number: US-ELI_LILLY_AND_COMPANY-US201112002669

PATIENT
  Sex: Male
  Weight: 111 kg

DRUGS (3)
  1. PROTONIX [Concomitant]
     Active Substance: PANTOPRAZOLE SODIUM
  2. LEXAPRO [Concomitant]
     Active Substance: ESCITALOPRAM OXALATE
  3. AXIRON [Suspect]
     Active Substance: TESTOSTERONE
     Indication: BLOOD TESTOSTERONE DECREASED
     Dosage: 60 MG, QD
     Route: 061

REACTIONS (5)
  - Incorrect dose administered [Recovered/Resolved with Sequelae]
  - Application site pain [Recovered/Resolved with Sequelae]
  - Skin odour abnormal [Recovered/Resolved with Sequelae]
  - Inappropriate schedule of drug administration [Recovered/Resolved with Sequelae]
  - Skin depigmentation [Recovered/Resolved with Sequelae]
